FAERS Safety Report 15755510 (Version 1)
Quarter: 2018Q4

REPORT INFORMATION
  Report Type: Spontaneous
  Country: US (occurrence: US)
  Receive Date: 20181224
  Receipt Date: 20181224
  Transmission Date: 20190205
  Serious: Yes (Hospitalization)
  Sender: FDA-Public Use
  Company Number: US-CIPLA LTD.-2018US23830

PATIENT

DRUGS (4)
  1. TESTOSTERONE. [Suspect]
     Active Substance: TESTOSTERONE
     Indication: PERFORMANCE ENHANCING PRODUCT USE
     Dosage: UNK, IN CYCLICAL FASHION FOR 7 MONTHS EACH YEAR FOR THE LAST 4 YEARS
     Route: 065
  2. CAFFEINE. [Interacting]
     Active Substance: CAFFEINE
     Indication: PRODUCT USED FOR UNKNOWN INDICATION
     Dosage: UNK, 1 DAILY CUP (~80 MG OF CAFFEINE)
     Route: 048
  3. AMPHETAMINE/ DEXTROAMPHETAMINE [Interacting]
     Active Substance: AMPHETAMINE ADIPATE\DEXTROAMPHETAMINE
     Indication: PERFORMANCE ENHANCING PRODUCT USE
     Dosage: 60 MG, DAILY IN CYCLICAL FASHION FOR 7 MONTHS EACH YEAR FOR THE LAST 4 YEARS
     Route: 065
  4. CAFFEINE. [Interacting]
     Active Substance: CAFFEINE
     Dosage: UNK, 7 EXPRESSOS EACH MORNING (~560 MG OF CAFFEINE)
     Route: 048

REACTIONS (3)
  - Intentional product misuse [Unknown]
  - Psychotic disorder [Recovered/Resolved]
  - Drug interaction [Unknown]
